FAERS Safety Report 6581883-6 (Version None)
Quarter: 2010Q1

REPORT INFORMATION
  Report Type: 
  Country: None (occurrence: None)
  Receive Date: 20100215
  Receipt Date: 20100205
  Transmission Date: 20100710
  Serious: Yes (Other)
  Sender: FDA-Public Use
  Company Number: BR-ABBOTT-10P-020-0624604-00

PATIENT
  Sex: Female
  Weight: 73 kg

DRUGS (3)
  1. SYNTHROID [Suspect]
     Indication: THYROID DISORDER
     Route: 048
     Dates: start: 20080101
  2. DILTIAZEM HYDROCHLORIDE [Concomitant]
     Indication: HYPERTENSION
     Route: 048
     Dates: start: 20090501
  3. ACETYLSALICYLIC ACID [Concomitant]
     Indication: MUSCLE RELAXANT THERAPY
     Route: 048

REACTIONS (6)
  - DYSPNOEA [None]
  - INSOMNIA [None]
  - JOINT SWELLING [None]
  - MUSCLE RIGIDITY [None]
  - NERVOUSNESS [None]
  - TREMOR [None]
